FAERS Safety Report 19618130 (Version 1)
Quarter: 2021Q3

REPORT INFORMATION
  Report Type: Spontaneous
  Country: US (occurrence: US)
  Receive Date: 20210727
  Receipt Date: 20210727
  Transmission Date: 20211014
  Serious: No
  Sender: FDA-Public Use
  Company Number: US-ROCHE-2708592

PATIENT
  Age: 62 Year
  Sex: Male

DRUGS (3)
  1. XELODA [Suspect]
     Active Substance: CAPECITABINE
     Indication: PRODUCT USED FOR UNKNOWN INDICATION
     Route: 048
     Dates: start: 202010
  2. XELODA [Suspect]
     Active Substance: CAPECITABINE
     Route: 048
     Dates: start: 202010
  3. XELODA [Suspect]
     Active Substance: CAPECITABINE
     Route: 048
     Dates: start: 202009

REACTIONS (14)
  - Pain [Unknown]
  - Diarrhoea [Unknown]
  - Blood bilirubin increased [Unknown]
  - Fatigue [Unknown]
  - Abdominal pain [Unknown]
  - Constipation [Unknown]
  - Aspartate aminotransferase increased [Unknown]
  - Liver function test increased [Unknown]
  - Neuropathy peripheral [Unknown]
  - Flatulence [Unknown]
  - Nausea [Unknown]
  - Vomiting [Unknown]
  - Alanine aminotransferase increased [Unknown]
  - Myalgia [Unknown]

NARRATIVE: CASE EVENT DATE: 20201019
